FAERS Safety Report 11871285 (Version 3)
Quarter: 2016Q1

REPORT INFORMATION
  Report Type: Spontaneous
  Country: JP (occurrence: JP)
  Receive Date: 20151228
  Receipt Date: 20160129
  Transmission Date: 20160526
  Serious: Yes (Hospitalization)
  Sender: FDA-Public Use
  Company Number: JP-MYLANLABS-2015M1046478

PATIENT

DRUGS (2)
  1. PREDNISOLONE MYLAN [Suspect]
     Active Substance: PREDNISOLONE
     Indication: HYPOGLYCAEMIA
     Dosage: 30 MG FOR 2 WEEKS
     Route: 065
  2. INSULIN [Suspect]
     Active Substance: INSULIN NOS
     Indication: PRODUCT USED FOR UNKNOWN INDICATION
     Dosage: 0.1 U/KG
     Route: 042

REACTIONS (2)
  - Hyperglycaemia [Unknown]
  - Insulin resistance syndrome [Recovered/Resolved]
